FAERS Safety Report 22627024 (Version 1)
Quarter: 2023Q2

REPORT INFORMATION
  Report Type: Spontaneous
  Country: US (occurrence: None)
  Receive Date: 20230622
  Receipt Date: 20230622
  Transmission Date: 20230721
  Serious: Yes (Life-Threatening, Hospitalization, Other)
  Sender: FDA-Public Use
  Company Number: US-Hikma Pharmaceuticals USA Inc.-US-H14001-23-02093

PATIENT
  Age: 69 Year
  Sex: Female
  Weight: 64 kg

DRUGS (52)
  1. LEUCOVORIN [Suspect]
     Active Substance: LEUCOVORIN
     Indication: Colorectal cancer
     Route: 042
     Dates: start: 20220831, end: 20220831
  2. LEUCOVORIN [Suspect]
     Active Substance: LEUCOVORIN
     Route: 065
     Dates: start: 20220929
  3. LEUCOVORIN [Suspect]
     Active Substance: LEUCOVORIN
     Route: 041
     Dates: start: 20221019
  4. LEUCOVORIN [Suspect]
     Active Substance: LEUCOVORIN
     Route: 041
     Dates: start: 20221109
  5. ZIMBERELIMAB [Suspect]
     Active Substance: ZIMBERELIMAB
     Indication: Colorectal cancer
     Route: 041
     Dates: start: 20220831, end: 20220831
  6. ZIMBERELIMAB [Suspect]
     Active Substance: ZIMBERELIMAB
     Route: 041
     Dates: start: 20221130
  7. ZIMBERELIMAB [Suspect]
     Active Substance: ZIMBERELIMAB
     Route: 041
     Dates: start: 20221228
  8. ETRUMADENANT [Suspect]
     Active Substance: ETRUMADENANT
     Indication: Colorectal cancer
     Route: 048
     Dates: start: 20220831, end: 20230124
  9. ETRUMADENANT [Suspect]
     Active Substance: ETRUMADENANT
     Route: 065
     Dates: start: 20221019, end: 20221123
  10. ETRUMADENANT [Suspect]
     Active Substance: ETRUMADENANT
     Route: 048
     Dates: start: 20221130, end: 20221227
  11. ETRUMADENANT [Suspect]
     Active Substance: ETRUMADENANT
     Route: 048
     Dates: start: 20230111, end: 20230124
  12. OXALIPLATIN [Suspect]
     Active Substance: OXALIPLATIN
     Indication: Colorectal cancer
     Route: 041
     Dates: start: 20220831, end: 20220831
  13. OXALIPLATIN [Suspect]
     Active Substance: OXALIPLATIN
     Route: 041
     Dates: start: 20221019
  14. OXALIPLATIN [Suspect]
     Active Substance: OXALIPLATIN
     Route: 041
     Dates: start: 20221109
  15. OXALIPLATIN [Suspect]
     Active Substance: OXALIPLATIN
     Route: 041
     Dates: start: 20221130
  16. OXALIPLATIN [Suspect]
     Active Substance: OXALIPLATIN
     Route: 041
     Dates: start: 20221214
  17. OXALIPLATIN [Suspect]
     Active Substance: OXALIPLATIN
     Route: 041
     Dates: start: 20221228
  18. OXALIPLATIN [Suspect]
     Active Substance: OXALIPLATIN
     Route: 041
     Dates: start: 20230111
  19. FLUOROURACIL [Suspect]
     Active Substance: FLUOROURACIL
     Indication: Colorectal cancer
     Route: 040
     Dates: start: 20220831, end: 20220831
  20. FLUOROURACIL [Suspect]
     Active Substance: FLUOROURACIL
     Route: 041
     Dates: start: 20220831, end: 20220831
  21. FLUOROURACIL [Suspect]
     Active Substance: FLUOROURACIL
     Route: 040
     Dates: start: 20221019
  22. FLUOROURACIL [Suspect]
     Active Substance: FLUOROURACIL
     Route: 041
     Dates: start: 20220831
  23. FLUOROURACIL [Suspect]
     Active Substance: FLUOROURACIL
     Route: 040
     Dates: start: 20221109
  24. FLUOROURACIL [Suspect]
     Active Substance: FLUOROURACIL
     Route: 041
     Dates: start: 20220831
  25. FLUOROURACIL [Suspect]
     Active Substance: FLUOROURACIL
     Route: 041
     Dates: start: 20221130
  26. FLUOROURACIL [Suspect]
     Active Substance: FLUOROURACIL
     Route: 041
     Dates: start: 20221214
  27. FLUOROURACIL [Suspect]
     Active Substance: FLUOROURACIL
     Route: 041
     Dates: start: 20221228
  28. FLUOROURACIL [Suspect]
     Active Substance: FLUOROURACIL
     Route: 041
     Dates: start: 20230111
  29. BEVACIZUMAB [Suspect]
     Active Substance: BEVACIZUMAB
     Indication: Colorectal cancer
     Route: 041
     Dates: start: 20220831
  30. BEVACIZUMAB [Suspect]
     Active Substance: BEVACIZUMAB
     Route: 041
     Dates: start: 20221019
  31. BEVACIZUMAB [Suspect]
     Active Substance: BEVACIZUMAB
     Route: 041
     Dates: start: 20221109
  32. BEVACIZUMAB [Suspect]
     Active Substance: BEVACIZUMAB
     Route: 041
     Dates: start: 20221130
  33. BEVACIZUMAB [Suspect]
     Active Substance: BEVACIZUMAB
     Route: 041
     Dates: start: 20221214
  34. BEVACIZUMAB [Suspect]
     Active Substance: BEVACIZUMAB
     Route: 041
     Dates: start: 20221228
  35. BEVACIZUMAB [Suspect]
     Active Substance: BEVACIZUMAB
     Route: 041
     Dates: start: 20230111
  36. MS CONTIN [Concomitant]
     Active Substance: MORPHINE SULFATE
     Indication: Product used for unknown indication
     Dosage: UNKNOWN
     Route: 065
  37. PERCOCET [Concomitant]
     Active Substance: ACETAMINOPHEN\OXYCODONE HYDROCHLORIDE
     Indication: Product used for unknown indication
     Dosage: UNKNOWN
     Route: 065
  38. POTASSIUM CHLORIDE [Concomitant]
     Active Substance: POTASSIUM CHLORIDE
     Indication: Product used for unknown indication
     Dosage: UNKNOWN
     Route: 065
  39. VENLAFAXINE [Concomitant]
     Active Substance: VENLAFAXINE HYDROCHLORIDE
     Indication: Product used for unknown indication
     Dosage: UNKNOWN
     Route: 065
  40. AMCAL PROCHLORPERAZINE [Concomitant]
     Indication: Product used for unknown indication
     Dosage: UNKNOWN
     Route: 065
  41. ZYPREXA [Concomitant]
     Active Substance: OLANZAPINE
     Indication: Product used for unknown indication
     Dosage: UNKNOWN
     Route: 065
  42. POTASSIUM CHLORIDE;GLUCOSE [Concomitant]
     Indication: Product used for unknown indication
     Dosage: UNKNOWN
     Route: 065
  43. IBUPROFEN [Concomitant]
     Active Substance: IBUPROFEN
     Indication: Product used for unknown indication
     Dosage: UNKNOWN
     Route: 065
  44. NEURONTIN [Concomitant]
     Active Substance: GABAPENTIN
     Indication: Product used for unknown indication
     Dosage: UNKNOWN
     Route: 065
  45. DECADRON [Concomitant]
     Active Substance: DEXAMETHASONE
     Indication: Product used for unknown indication
     Dosage: UNKNOWN
     Route: 065
  46. ADDERALL [Concomitant]
     Active Substance: AMPHETAMINE ASPARTATE\AMPHETAMINE SULFATE\DEXTROAMPHETAMINE SACCHARATE\DEXTROAMPHETAMINE SULFATE
     Indication: Product used for unknown indication
     Dosage: UNKNOWN
     Route: 065
  47. LEVOTHYROXINE [Concomitant]
     Active Substance: LEVOTHYROXINE
     Indication: Product used for unknown indication
     Dosage: UNKNOWN
     Route: 065
  48. ATIVAN [Concomitant]
     Active Substance: LORAZEPAM
     Indication: Product used for unknown indication
     Dosage: UNKNOWN
     Route: 065
  49. COLESTID [Concomitant]
     Active Substance: COLESTIPOL HYDROCHLORIDE
     Indication: Product used for unknown indication
     Dosage: UNKNOWN
     Route: 065
  50. COMPAZINE [Concomitant]
     Active Substance: PROCHLORPERAZINE MALEATE
     Indication: Product used for unknown indication
     Dosage: UNKNOWN
     Route: 065
  51. TBO-FILGRASTIM [Concomitant]
     Active Substance: TBO-FILGRASTIM
     Indication: Product used for unknown indication
     Dosage: UNKNOWN
     Route: 065
  52. IMODIUM [Concomitant]
     Active Substance: LOPERAMIDE HYDROCHLORIDE
     Indication: Product used for unknown indication
     Dosage: UNKNOWN
     Route: 065

REACTIONS (27)
  - Fatigue [Recovered/Resolved]
  - Urine analysis abnormal [Unknown]
  - Body temperature increased [Unknown]
  - Platelet count decreased [Unknown]
  - Protein total abnormal [Unknown]
  - White blood cell count decreased [Recovered/Resolved]
  - Febrile neutropenia [Recovered/Resolved with Sequelae]
  - Asthenia [Unknown]
  - Confusional state [Unknown]
  - Somnolence [Unknown]
  - Altered state of consciousness [Unknown]
  - Hypophosphataemia [Unknown]
  - Hypocalcaemia [Unknown]
  - Hypokalaemia [Unknown]
  - Leukopenia [Unknown]
  - Thrombocytopenia [Unknown]
  - Blood urea nitrogen/creatinine ratio increased [Unknown]
  - Haematocrit decreased [Unknown]
  - Haemoglobin decreased [Unknown]
  - Lymphocyte count decreased [Unknown]
  - Mean cell haemoglobin concentration decreased [Unknown]
  - Monocyte count decreased [Unknown]
  - Red blood cell count decreased [Unknown]
  - Pyrexia [Unknown]
  - Dehydration [Unknown]
  - Immunodeficiency [Unknown]
  - Lactic acidosis [Unknown]

NARRATIVE: CASE EVENT DATE: 20220913
